FAERS Safety Report 17956947 (Version 1)
Quarter: 2020Q2

REPORT INFORMATION
  Report Type: Spontaneous
  Country: US (occurrence: US)
  Receive Date: 20200629
  Receipt Date: 20200629
  Transmission Date: 20200714
  Serious: No
  Sender: FDA-Public Use
  Company Number: None

PATIENT
  Age: 57 Year
  Sex: Female

DRUGS (11)
  1. CEFDINIR 300MG [Concomitant]
     Active Substance: CEFDINIR
     Dates: start: 20200618
  2. MONTELUKAST [Concomitant]
     Active Substance: MONTELUKAST SODIUM
     Dates: start: 20200618
  3. FLONASE 50UG [Concomitant]
     Dates: start: 20200618
  4. BREO 200/25 [Concomitant]
     Dates: start: 20200319
  5. CARVEDILOL 12.5MG [Concomitant]
     Active Substance: CARVEDILOL
     Dates: start: 20190904
  6. NURTEC 75MG ODT [Concomitant]
     Dates: start: 20200505
  7. TRULANCE 3MG [Concomitant]
     Dates: start: 20200205
  8. PANTOPROZOLE 40MG [Concomitant]
     Dates: start: 20180702
  9. AMLODIPINE [Concomitant]
     Active Substance: AMLODIPINE BESYLATE
     Dates: start: 20200128
  10. AIMOVIG [Suspect]
     Active Substance: ERENUMAB-AOOE
     Indication: MIGRAINE
     Dosage: ?          OTHER FREQUENCY:Q MONTH;?
     Route: 058
     Dates: start: 20181213
  11. METHOTREXATE 2.5MG [Concomitant]
     Active Substance: METHOTREXATE
     Dates: start: 20190901

REACTIONS (3)
  - Sinusitis [None]
  - Headache [None]
  - Dyspnoea [None]

NARRATIVE: CASE EVENT DATE: 20200618
